FAERS Safety Report 5340098-X (Version None)
Quarter: 2007Q2

REPORT INFORMATION
  Report Type: 
  Country: None (occurrence: None)
  Receive Date: 20070525
  Receipt Date: 20070525
  Transmission Date: 20071010
  Serious: Yes (Hospitalization)
  Sender: FDA-Public Use
  Company Number: None

PATIENT
  Age: 61 Year
  Sex: Male

DRUGS (8)
  1. ISONIAZID [Suspect]
     Indication: TUBERCULOSIS SKIN TEST POSITIVE
     Dosage: 300MG DAILY PO
     Route: 048
  2. PRAVACHOL [Concomitant]
  3. TRAZODONE HCL [Concomitant]
  4. B6 [Concomitant]
  5. ARICEPT [Concomitant]
  6. .. [Concomitant]
  7. THIAMINE [Concomitant]
  8. FOLIC ACID [Concomitant]

REACTIONS (4)
  - CELLULITIS [None]
  - DRUG ERUPTION [None]
  - RASH GENERALISED [None]
  - RASH PAPULAR [None]
